FAERS Safety Report 8749438 (Version 2)
Quarter: 2012Q4

REPORT INFORMATION
  Report Type: Spontaneous
  Country: CH (occurrence: None)
  Receive Date: 20120806
  Receipt Date: 20120824
  Transmission Date: 20130627
  Serious: Yes (Other)
  Sender: FDA-Public Use
  Company Number: DSA_58795_2012

PATIENT
  Age: 47 Year
  Sex: Female

DRUGS (1)
  1. WELLBUTRIN [Suspect]
     Indication: DEPRESSION
     Dosage: (150 MG, DAILY ORAL)
     Route: 048
     Dates: start: 20120505, end: 20120512

REACTIONS (5)
  - Urticaria [None]
  - Headache [None]
  - Feeling hot [None]
  - Malaise [None]
  - Product formulation issue [None]
